FAERS Safety Report 9493273 (Version 3)
Quarter: 2013Q4

REPORT INFORMATION
  Report Type: Spontaneous
  Country: DE (occurrence: DE)
  Receive Date: 20130902
  Receipt Date: 20131029
  Transmission Date: 20140711
  Serious: Yes (Hospitalization, Other)
  Sender: FDA-Public Use
  Company Number: PHHY2013DE094911

PATIENT
  Sex: Female

DRUGS (3)
  1. LEPONEX [Suspect]
     Indication: SCHIZOPHRENIA
     Dosage: 1 DF, QD
     Route: 048
     Dates: start: 1999
  2. LEPONEX [Suspect]
     Dosage: UNK
  3. LEPONEX [Suspect]
     Dosage: UNK

REACTIONS (7)
  - Kidney infection [Recovering/Resolving]
  - Leukocytosis [Unknown]
  - Urinary tract infection [Unknown]
  - Antipsychotic drug level increased [Recovered/Resolved]
  - Fatigue [Recovered/Resolved]
  - Antipsychotic drug level below therapeutic [Unknown]
  - Pyrexia [Recovered/Resolved]
